FAERS Safety Report 7158354-1 (Version None)
Quarter: 2010Q4

REPORT INFORMATION
  Report Type: 
  Country: None (occurrence: None)
  Receive Date: 20101214
  Receipt Date: 20091021
  Transmission Date: 20110411
  Serious: No
  Sender: FDA-Public Use
  Company Number: US-PFIZER INC-2009287056

PATIENT
  Sex: Female
  Weight: 90.7 kg

DRUGS (3)
  1. ARTHROTEC [Suspect]
     Indication: TOOTHACHE
     Dosage: 75 MG, 2X/DAY
     Dates: start: 20090925, end: 20090926
  2. IBUPROFEN [Suspect]
     Dosage: 800 MG, UNK
  3. ALEVE (CAPLET) [Concomitant]
     Indication: TOOTH DISORDER
     Dosage: 100 MG, 4X/DAY
     Dates: start: 20090921

REACTIONS (1)
  - ABDOMINAL PAIN UPPER [None]
